FAERS Safety Report 25430534 (Version 2)
Quarter: 2025Q3

REPORT INFORMATION
  Report Type: Spontaneous
  Country: JP (occurrence: JP)
  Receive Date: 20250612
  Receipt Date: 20250702
  Transmission Date: 20251020
  Serious: No
  Sender: EISAI
  Company Number: JP-Eisai-202502939_DVG_P_1

PATIENT
  Age: 25 Year
  Sex: Female

DRUGS (4)
  1. DAYVIGO [Suspect]
     Active Substance: LEMBOREXANT
     Indication: Product used for unknown indication
     Route: 048
     Dates: start: 20250524, end: 20250524
  2. DAYVIGO [Suspect]
     Active Substance: LEMBOREXANT
     Route: 048
     Dates: start: 202505
  3. GRAPEFRUIT JUICE [Interacting]
     Active Substance: GRAPEFRUIT JUICE
     Indication: Product used for unknown indication
  4. MELATONIN [Concomitant]
     Active Substance: MELATONIN
     Indication: Product used for unknown indication
     Route: 048

REACTIONS (15)
  - Abnormal behaviour [Recovering/Resolving]
  - Food interaction [Recovering/Resolving]
  - Inappropriate schedule of product administration [Recovering/Resolving]
  - Somnolence [Unknown]
  - Brain fog [Unknown]
  - Tinnitus [Unknown]
  - Visual field defect [Unknown]
  - Tremor [Unknown]
  - Hyperhidrosis [Unknown]
  - Dyspnoea [Unknown]
  - Musculoskeletal stiffness [Unknown]
  - Dyskinesia [Unknown]
  - Pallor [Unknown]
  - Head discomfort [Unknown]
  - Irritability [Unknown]

NARRATIVE: CASE EVENT DATE: 20250524
